FAERS Safety Report 6983329-2 (Version None)
Quarter: 2010Q3

REPORT INFORMATION
  Report Type: 
  Country: None (occurrence: None)
  Receive Date: 20100914
  Receipt Date: 20100803
  Transmission Date: 20110219
  Serious: No
  Sender: FDA-Public Use
  Company Number: US-PFIZER INC-2010086715

PATIENT
  Sex: Female

DRUGS (2)
  1. LYRICA [Suspect]
     Indication: SURGERY
     Dosage: 75 MG, 2X/DAY
     Route: 048
  2. SKELAXIN [Concomitant]
     Dosage: UNK

REACTIONS (3)
  - PAIN [None]
  - PAIN IN EXTREMITY [None]
  - VISUAL IMPAIRMENT [None]
